FAERS Safety Report 6973526-4 (Version None)
Quarter: 2010Q3

REPORT INFORMATION
  Report Type: 
  Country: None (occurrence: None)
  Receive Date: 20100907
  Receipt Date: 20100826
  Transmission Date: 20110219
  Serious: Yes (Other)
  Sender: FDA-Public Use
  Company Number: 2010EU003714

PATIENT
  Age: 26 Year
  Sex: Female

DRUGS (5)
  1. PROGRAF [Suspect]
     Indication: IMMUNOSUPPRESSION
     Dosage: 3.5 MG, BID, ORAL
     Route: 048
  2. AZATHIOPRINE SODIUM [Suspect]
     Indication: IMMUNOSUPPRESSION
     Dosage: 75 MG, UID/QD, ORAL
     Route: 048
  3. PREDNISONE TAB [Suspect]
     Indication: IMMUNOSUPPRESSION
     Dosage: 7.5 MG, UID/QD, ORAL
     Route: 048
  4. PRAVASTATIN SODIUM [Suspect]
     Indication: IMMUNOSUPPRESSION
     Dosage: 1 DF, UID/QD, ORAL
     Route: 048
  5. FOLIC ACID [Concomitant]

REACTIONS (3)
  - ABORTION SPONTANEOUS [None]
  - DRUG EXPOSURE DURING PREGNANCY [None]
  - PREGNANCY [None]
